FAERS Safety Report 21104901 (Version 1)
Quarter: 2022Q3

REPORT INFORMATION
  Report Type: Other
  Country: US (occurrence: None)
  Receive Date: 20220720
  Receipt Date: 20220720
  Transmission Date: 20221027
  Serious: Yes (Death)
  Sender: FDA-Public Use
  Company Number: US-ROCHE-3140103

PATIENT
  Age: 9 Year
  Sex: Female
  Weight: 20.8 kg

DRUGS (1)
  1. EVRYSDI [Suspect]
     Active Substance: RISDIPLAM
     Indication: Spinal muscular atrophy
     Dosage: NO
     Route: 048
     Dates: start: 20201110

REACTIONS (2)
  - Cardiac disorder [Fatal]
  - Brain injury [Fatal]

NARRATIVE: CASE EVENT DATE: 20220626
